FAERS Safety Report 17752226 (Version 1)
Quarter: 2020Q2

REPORT INFORMATION
  Report Type: Spontaneous
  Country: CN (occurrence: CN)
  Receive Date: 20200506
  Receipt Date: 20200506
  Transmission Date: 20200714
  Serious: Yes (Hospitalization)
  Sender: FDA-Public Use
  Company Number: CN-CELGENEUS-CHN-20200500439

PATIENT
  Age: 64 Year
  Sex: Male
  Weight: 55 kg

DRUGS (7)
  1. CARBOPLATIN. [Suspect]
     Active Substance: CARBOPLATIN
     Dosage: AUC=5
     Route: 041
     Dates: start: 20200326
  2. SALMETEROL XINAFOATE AND FLUTICASONE PROPIONATE [Concomitant]
     Indication: CHRONIC OBSTRUCTIVE PULMONARY DISEASE
     Dosage: 40 MILLIGRAM
     Route: 055
     Dates: start: 2019
  3. ABRAXANE [Suspect]
     Active Substance: PACLITAXEL
     Indication: NON-SMALL CELL LUNG CANCER
     Dosage: 100 MILLIGRAM/SQ. METER
     Route: 041
     Dates: start: 20200211
  4. CARBOPLATIN. [Suspect]
     Active Substance: CARBOPLATIN
     Dosage: AUC=5
     Route: 041
     Dates: start: 20200305, end: 20200305
  5. CARBOPLATIN. [Suspect]
     Active Substance: CARBOPLATIN
     Indication: NON-SMALL CELL LUNG CANCER
     Dosage: AUC=5
     Route: 041
     Dates: start: 20200211, end: 20200211
  6. SERPLULIMAB. [Concomitant]
     Active Substance: SERPLULIMAB
     Dosage: 4.5 MILLIGRAM/KILOGRAM
     Route: 041
     Dates: start: 20200326
  7. SERPLULIMAB. [Concomitant]
     Active Substance: SERPLULIMAB
     Indication: NON-SMALL CELL LUNG CANCER
     Dosage: 4.5 MILLIGRAM/KILOGRAM
     Route: 041
     Dates: start: 20200211, end: 20200305

REACTIONS (1)
  - Bone marrow failure [Recovered/Resolved]

NARRATIVE: CASE EVENT DATE: 20200410
